FAERS Safety Report 21553974 (Version 1)
Quarter: 2022Q4

REPORT INFORMATION
  Report Type: Spontaneous
  Country: US (occurrence: US)
  Receive Date: 20221104
  Receipt Date: 20221104
  Transmission Date: 20230113
  Serious: No
  Sender: FDA-Public Use
  Company Number: US-Accord-262436

PATIENT
  Age: 57 Year
  Sex: Female
  Weight: 104.33 kg

DRUGS (28)
  1. GLIPIZIDE [Suspect]
     Active Substance: GLIPIZIDE
     Indication: Product used for unknown indication
     Dates: end: 20220410
  2. MIFEPRISTONE [Suspect]
     Active Substance: MIFEPRISTONE
     Indication: Cushing^s syndrome
     Dosage: QD
     Route: 048
     Dates: start: 20210427, end: 202203
  3. ALBUTEROL SULFATE [Concomitant]
     Active Substance: ALBUTEROL SULFATE
  4. AMLODIPINE [Concomitant]
     Active Substance: AMLODIPINE BESYLATE
  5. ASPIRIN [Concomitant]
     Active Substance: ASPIRIN
  6. ATORVASTATIN CALCIUM [Concomitant]
     Active Substance: ATORVASTATIN CALCIUM
  7. AZELASTINE [Concomitant]
     Active Substance: AZELASTINE
  8. BISACODYL [Concomitant]
     Active Substance: BISACODYL
  9. CARBOXYMETHYLCELLULOSE SODIUM [Concomitant]
     Active Substance: CARBOXYMETHYLCELLULOSE SODIUM
  10. CLONAZEPAM [Concomitant]
     Active Substance: CLONAZEPAM
  11. CLONIDINE [Concomitant]
     Active Substance: CLONIDINE
  12. CYCLOBENZAPRINE [Concomitant]
     Active Substance: CYCLOBENZAPRINE
  13. DICLOFENAC [Concomitant]
     Active Substance: DICLOFENAC
  14. DULOXETINE [Concomitant]
     Active Substance: DULOXETINE
  15. FENOFIBRATE [Concomitant]
     Active Substance: FENOFIBRATE
  16. GABAPENTIN [Concomitant]
     Active Substance: GABAPENTIN
  17. HUMALOG [Concomitant]
     Active Substance: INSULIN LISPRO
     Dosage: 50/50
  18. LAMOTRIGINE [Concomitant]
     Active Substance: LAMOTRIGINE
  19. LISINOPRIL [Concomitant]
     Active Substance: LISINOPRIL
  20. METFORMIN [Concomitant]
     Active Substance: METFORMIN HYDROCHLORIDE
  21. MIRTAZAPINE [Concomitant]
     Active Substance: MIRTAZAPINE
  22. OMEPRAZOLE [Concomitant]
     Active Substance: OMEPRAZOLE
  23. SEMAGLUTIDE [Concomitant]
     Active Substance: SEMAGLUTIDE
  24. POLYETHYLENE GLYCOLS [Concomitant]
     Active Substance: POLYETHYLENE GLYCOLS
  25. VICTOZA [Concomitant]
     Active Substance: LIRAGLUTIDE
  26. HYDROCHLOROTHIAZIDE [Concomitant]
     Active Substance: HYDROCHLOROTHIAZIDE
  27. GLIPIZIDE [Suspect]
     Active Substance: GLIPIZIDE
     Indication: Product used for unknown indication
     Dosage: DECREASE FORM TWICE DAILY TO ONCE A DAY,
     Dates: start: 20220411
  28. MIFEPRISTONE [Suspect]
     Active Substance: MIFEPRISTONE
     Indication: Cushing^s syndrome
     Dosage: QD
     Route: 048
     Dates: start: 202203

REACTIONS (4)
  - Bladder discomfort [Unknown]
  - Fatigue [Unknown]
  - Blood pressure increased [Unknown]
  - Hypoglycaemia [Unknown]

NARRATIVE: CASE EVENT DATE: 20220301
